FAERS Safety Report 9139023 (Version 1)
Quarter: 2013Q1

REPORT INFORMATION
  Report Type: Spontaneous
  Country: FR (occurrence: FR)
  Receive Date: 20130305
  Receipt Date: 20130305
  Transmission Date: 20140127
  Serious: Yes (Congenital Anomaly, Other)
  Sender: FDA-Public Use
  Company Number: FR-ELI_LILLY_AND_COMPANY-FR201302008016

PATIENT
  Sex: 0

DRUGS (3)
  1. ZYPREXA [Suspect]
     Dosage: 10 MG, QD
     Route: 064
  2. ALDACTAZINE [Concomitant]
     Dosage: 1 DF, QD
     Route: 064
  3. ROCEPHINE [Concomitant]
     Dosage: 1 G, QD
     Route: 064

REACTIONS (2)
  - Talipes [Unknown]
  - Foetal exposure during pregnancy [Recovered/Resolved]
